FAERS Safety Report 10073561 (Version 1)
Quarter: 2014Q2

REPORT INFORMATION
  Report Type: Spontaneous
  Country: ES (occurrence: ES)
  Receive Date: 20140411
  Receipt Date: 20140411
  Transmission Date: 20141212
  Serious: Yes (Life-Threatening, Hospitalization, Other)
  Sender: FDA-Public Use
  Company Number: ES-WATSON-2014-06970

PATIENT
  Age: 28 Year
  Sex: Female

DRUGS (2)
  1. METHYLPREDNISOLONE (UNKNOWN) [Suspect]
     Indication: LUPUS NEPHRITIS
     Dosage: UNK (HIGH DOSE)
     Route: 040
  2. CYCLOPHOSPHAMIDE (UNKNOWN) [Suspect]
     Indication: LUPUS NEPHRITIS
     Dosage: UNK (HIGH DOSE)
     Route: 040

REACTIONS (5)
  - Acute respiratory failure [Recovered/Resolved]
  - Endocarditis candida [Recovered/Resolved]
  - Productive cough [Recovered/Resolved]
  - Haemoptysis [Recovered/Resolved]
  - Pyrexia [Recovered/Resolved]
